FAERS Safety Report 9220607 (Version 2)
Quarter: 2013Q2

REPORT INFORMATION
  Report Type: Spontaneous
  Country: FR (occurrence: FR)
  Receive Date: 20130409
  Receipt Date: 20130422
  Transmission Date: 20140414
  Serious: Yes (Hospitalization)
  Sender: FDA-Public Use
  Company Number: FR-JNJFOC-20130403438

PATIENT
  Age: 61 Year
  Sex: Male

DRUGS (5)
  1. XARELTO [Suspect]
     Indication: EMBOLISM VENOUS
     Route: 048
     Dates: start: 20120218, end: 20130228
  2. XARELTO [Suspect]
     Indication: DEEP VEIN THROMBOSIS
     Route: 048
     Dates: start: 20120218, end: 20130228
  3. ARIXTRA [Concomitant]
     Route: 065
  4. HUMEX [Concomitant]
     Indication: COUGH
     Route: 065
     Dates: start: 201302
  5. RENNIE [Concomitant]
     Route: 065
     Dates: start: 201302

REACTIONS (2)
  - Pulmonary embolism [Recovering/Resolving]
  - Thrombocytopenic purpura [Recovering/Resolving]
